FAERS Safety Report 14625018 (Version 1)
Quarter: 2018Q1

REPORT INFORMATION
  Report Type: Spontaneous
  Country: GB (occurrence: GB)
  Receive Date: 20180312
  Receipt Date: 20180312
  Transmission Date: 20180509
  Serious: Yes (Other)
  Sender: FDA-Public Use
  Company Number: GB-BAYER-2018-044190

PATIENT
  Sex: Female

DRUGS (1)
  1. ASPIRIN. [Suspect]
     Active Substance: ASPIRIN
     Indication: CEREBROVASCULAR ACCIDENT

REACTIONS (3)
  - Product use in unapproved indication [None]
  - Atrial fibrillation [None]
  - Haemorrhage [None]
